FAERS Safety Report 25050823 (Version 1)
Quarter: 2025Q1

REPORT INFORMATION
  Report Type: Report from Study
  Country: US (occurrence: US)
  Receive Date: 20250307
  Receipt Date: 20250307
  Transmission Date: 20250409
  Serious: Yes (Hospitalization, Other)
  Sender: UCB
  Company Number: US-UCBSA-2023026732

PATIENT
  Age: 11 Year
  Sex: Male

DRUGS (14)
  1. FINTEPLA [Suspect]
     Active Substance: FENFLURAMINE
     Indication: Lennox-Gastaut syndrome
     Dosage: 4.5 MILLILITER, 2X/DAY (BID)
     Dates: start: 20220919
  2. LEVETIRACETAM [Suspect]
     Active Substance: LEVETIRACETAM
     Indication: Seizure
     Dates: start: 201911
  3. LACOSAMIDE [Suspect]
     Active Substance: LACOSAMIDE
     Indication: Seizure
     Dates: start: 202203
  4. TOPIRAMATE [Concomitant]
     Active Substance: TOPIRAMATE
     Indication: Seizure
     Dates: start: 201911
  5. CLONAZEPAM [Concomitant]
     Active Substance: CLONAZEPAM
     Indication: Seizure
     Dates: start: 201911
  6. CLOBAZAM [Concomitant]
     Active Substance: CLOBAZAM
     Indication: Seizure
     Dates: start: 202001
  7. CLOBAZAM [Concomitant]
     Active Substance: CLOBAZAM
     Dates: start: 202111
  8. CLOBAZAM [Concomitant]
     Active Substance: CLOBAZAM
  9. VALPROIC ACID [Concomitant]
     Active Substance: VALPROIC ACID
     Indication: Seizure
     Dates: start: 202001
  10. OXCARBAZEPINE [Concomitant]
     Active Substance: OXCARBAZEPINE
     Indication: Seizure
     Dates: start: 202001
  11. EPIDIOLEX [Concomitant]
     Active Substance: CANNABIDIOL
     Indication: Seizure
     Dates: start: 2021
  12. ZONISAMIDE [Concomitant]
     Active Substance: ZONISAMIDE
     Indication: Product used for unknown indication
     Route: 048
     Dates: start: 202103
  13. XCOPRI [Concomitant]
     Active Substance: CENOBAMATE
     Indication: Seizure
     Route: 048
     Dates: start: 20250214
  14. NAYZILAM [Concomitant]
     Active Substance: MIDAZOLAM
     Indication: Product used for unknown indication
     Route: 045
     Dates: start: 20240219

REACTIONS (19)
  - Seizure [Not Recovered/Not Resolved]
  - Brain operation [Unknown]
  - Encephalopathy [Unknown]
  - Partial seizures [Unknown]
  - Pneumonia [Unknown]
  - Gait disturbance [Recovered/Resolved]
  - Atonic seizures [Unknown]
  - Fall [Recovered/Resolved]
  - Weight increased [Unknown]
  - Vagal nerve stimulator implantation [Unknown]
  - Aggression [Unknown]
  - Decreased appetite [Recovered/Resolved]
  - Insomnia [Recovered/Resolved]
  - Irritability [Unknown]
  - Somnolence [Recovered/Resolved]
  - Pyrexia [Unknown]
  - Wheelchair user [Unknown]
  - Pineal gland cyst [Unknown]
  - Drug ineffective [Unknown]

NARRATIVE: CASE EVENT DATE: 20200101
